FAERS Safety Report 4522341-X (Version None)
Quarter: 2004Q4

REPORT INFORMATION
  Report Type: 
  Country: None (occurrence: None)
  Receive Date: 20041207
  Receipt Date: 20041126
  Transmission Date: 20050328
  Serious: Yes (Other)
  Sender: FDA-Public Use
  Company Number: 167-20785-04120050

PATIENT
  Age: 70 Year
  Sex: Female

DRUGS (5)
  1. THALOMID [Suspect]
     Indication: MULTIPLE MYELOMA
     Dosage: 50 MG, QD, ORAL
     Route: 048
     Dates: start: 20040922, end: 20041029
  2. RABEPRAZOLE SODIUM [Concomitant]
  3. FERROUS SULFATE TAB [Concomitant]
  4. LOSARTAN (LOSARTAN) [Concomitant]
  5. FELODIPINE [Concomitant]

REACTIONS (3)
  - CONFUSIONAL STATE [None]
  - FEELING ABNORMAL [None]
  - VISUAL FIELD DEFECT [None]
